FAERS Safety Report 7211077-2 (Version None)
Quarter: 2010Q4

REPORT INFORMATION
  Report Type: 
  Country: None (occurrence: None)
  Receive Date: 20101223
  Receipt Date: 20101213
  Transmission Date: 20110411
  Serious: Yes (Death)
  Sender: FDA-Public Use
  Company Number: 08-222

PATIENT
  Age: 70 Year
  Sex: Male

DRUGS (1)
  1. FAZACLO ODT [Suspect]
     Indication: PRODUCT USED FOR UNKNOWN INDICATION
     Dosage: 450 MG DAILY PO
     Route: 048
     Dates: start: 20060126, end: 20080728

REACTIONS (1)
  - DEMENTIA ALZHEIMER'S TYPE [None]
